FAERS Safety Report 9856728 (Version 1)
Quarter: 2014Q1

REPORT INFORMATION
  Report Type: Spontaneous
  Country: BE (occurrence: BE)
  Receive Date: 20140130
  Receipt Date: 20140130
  Transmission Date: 20141002
  Serious: Yes (Other)
  Sender: FDA-Public Use
  Company Number: BE-GLAXOSMITHKLINE-B0963665A

PATIENT
  Age: 50 Year
  Sex: Female

DRUGS (5)
  1. ACYCLOVIR [Suspect]
     Indication: PRODUCT USED FOR UNKNOWN INDICATION
     Route: 042
  2. LEVETIRACETAM [Concomitant]
     Indication: PRODUCT USED FOR UNKNOWN INDICATION
     Route: 042
  3. CEFTRIAXONE [Concomitant]
     Indication: PRODUCT USED FOR UNKNOWN INDICATION
     Route: 042
  4. AMPICILLIN [Concomitant]
     Indication: PRODUCT USED FOR UNKNOWN INDICATION
     Route: 042
  5. ADALIMUMAB [Concomitant]
     Indication: PSORIASIS

REACTIONS (9)
  - Herpes simplex encephalitis [Recovering/Resolving]
  - Neurological symptom [Unknown]
  - Confusional state [Unknown]
  - Abnormal behaviour [Unknown]
  - Brain injury [Unknown]
  - White blood cell count increased [Unknown]
  - Red blood cell count increased [Unknown]
  - Protein total increased [Unknown]
  - Drug resistance [Unknown]
